FAERS Safety Report 7863630-0 (Version None)
Quarter: 2011Q4

REPORT INFORMATION
  Report Type: 
  Country: None (occurrence: None)
  Receive Date: 20111027
  Receipt Date: 20101207
  Transmission Date: 20120403
  Serious: Yes (Hospitalization)
  Sender: FDA-Public Use
  Company Number: US-AMGEN-USASP2010002153

PATIENT
  Age: 58 Year
  Sex: Male

DRUGS (2)
  1. ENBREL [Suspect]
     Indication: RHEUMATOID ARTHRITIS
     Dosage: 25 MG, QWK
     Route: 058
     Dates: start: 20070101
  2. ENBREL [Suspect]
     Indication: ANKYLOSING SPONDYLITIS
     Dosage: 50 MG, PRN
     Dates: start: 20040101

REACTIONS (6)
  - PNEUMONIA PRIMARY ATYPICAL [None]
  - NASAL CONGESTION [None]
  - SINUSITIS [None]
  - OTITIS MEDIA [None]
  - FACIAL PAIN [None]
  - OTITIS EXTERNA [None]
